FAERS Safety Report 10224141 (Version 1)
Quarter: 2014Q2

REPORT INFORMATION
  Report Type: Report from Study
  Country: GB (occurrence: GB)
  Receive Date: 20140609
  Receipt Date: 20140609
  Transmission Date: 20141212
  Serious: Yes (Hospitalization, Disabling, Other)
  Sender: FDA-Public Use
  Company Number: PHHY2014GB069002

PATIENT
  Sex: Female

DRUGS (2)
  1. DICLOFENAC [Suspect]
     Indication: OSTEOARTHRITIS
     Dosage: 75 MG, UNK
     Route: 048
     Dates: start: 20110511, end: 20140529
  2. CELECOXIB [Concomitant]
     Dosage: UNK UKN, UNK

REACTIONS (6)
  - Obstruction gastric [Recovering/Resolving]
  - Gastritis [Recovering/Resolving]
  - Aphagia [Unknown]
  - Vomiting [Unknown]
  - Inflammation [Unknown]
  - Haemoglobin decreased [Unknown]
